FAERS Safety Report 4565576-2 (Version None)
Quarter: 2005Q1

REPORT INFORMATION
  Report Type: 
  Country: None (occurrence: None)
  Receive Date: 20050131
  Receipt Date: 20050114
  Transmission Date: 20050727
  Serious: Yes (Other)
  Sender: FDA-Public Use
  Company Number: GB-BRISTOL-MYERS SQUIBB COMPANY-12826830

PATIENT
  Age: 49 Year
  Sex: Male

DRUGS (5)
  1. APROVEL TABS 150 MG [Suspect]
     Indication: HYPERTENSION
     Route: 048
     Dates: start: 20020801
  2. VITAMIN B COMPLEX CAP [Concomitant]
  3. CODEINE [Concomitant]
  4. IBUPROFEN [Concomitant]
  5. PARACETAMOL [Concomitant]

REACTIONS (4)
  - ASTHENIA [None]
  - BLOOD CREATINE PHOSPHOKINASE INCREASED [None]
  - CHROMATURIA [None]
  - MYALGIA [None]
